FAERS Safety Report 19143449 (Version 4)
Quarter: 2021Q3

REPORT INFORMATION
  Report Type: Spontaneous
  Country: JP (occurrence: JP)
  Receive Date: 20210415
  Receipt Date: 20210701
  Transmission Date: 20211014
  Serious: No
  Sender: FDA-Public Use
  Company Number: JP-JNJFOC-20210401628

PATIENT
  Age: 79 Year
  Sex: Female
  Weight: 33.8 kg

DRUGS (1)
  1. SIMPONI [Suspect]
     Active Substance: GOLIMUMAB
     Indication: RHEUMATOID ARTHRITIS
     Dosage: 50.00 MG / 0.50 ML
     Route: 058
     Dates: start: 20200106

REACTIONS (3)
  - Injury associated with device [Recovering/Resolving]
  - Needle issue [Recovering/Resolving]
  - Device deployment issue [Recovering/Resolving]

NARRATIVE: CASE EVENT DATE: 20210329
